FAERS Safety Report 19972078 (Version 1)
Quarter: 2021Q4

REPORT INFORMATION
  Report Type: Spontaneous
  Country: US (occurrence: US)
  Receive Date: 20211015
  Receipt Date: 20211015
  Transmission Date: 20220303
  Serious: Yes (Hospitalization)
  Sender: FDA-Public Use
  Company Number: None

PATIENT
  Age: 28 Month
  Sex: Female
  Weight: 14.1 kg

DRUGS (4)
  1. DEXAMETHASONE [Suspect]
     Active Substance: DEXAMETHASONE
     Dates: end: 20211012
  2. CYTARABINE [Suspect]
     Active Substance: CYTARABINE
     Dates: end: 20210916
  3. ONCASPAR [Suspect]
     Active Substance: PEGASPARGASE
     Dosage: ?          OTHER DOSE:1425 UNIT;
     Dates: end: 20210920
  4. VINCRISTINE SULFATE [Suspect]
     Active Substance: VINCRISTINE SULFATE
     Dates: end: 20211008

REACTIONS (6)
  - B precursor type acute leukaemia [None]
  - Abdominal distension [None]
  - Constipation [None]
  - Intestinal perforation [None]
  - Neutropenia [None]
  - Opportunistic infection [None]

NARRATIVE: CASE EVENT DATE: 20211013
